FAERS Safety Report 11145784 (Version 1)
Quarter: 2015Q2

REPORT INFORMATION
  Report Type: Report from Study
  Country: BR (occurrence: BR)
  Receive Date: 20150528
  Receipt Date: 20150528
  Transmission Date: 20150821
  Serious: Yes (Hospitalization, Other)
  Sender: FDA-Public Use
  Company Number: BR-SA-2015SA067512

PATIENT
  Age: 66 Year
  Sex: Male
  Weight: 75 kg

DRUGS (5)
  1. APIDRA [Suspect]
     Active Substance: INSULIN GLULISINE
     Indication: TYPE 2 DIABETES MELLITUS
     Route: 058
     Dates: start: 201505
  2. LANTUS [Suspect]
     Active Substance: INSULIN GLARGINE
     Indication: TYPE 2 DIABETES MELLITUS
     Route: 058
     Dates: start: 2011, end: 201505
  3. APIDRA [Suspect]
     Active Substance: INSULIN GLULISINE
     Indication: TYPE 2 DIABETES MELLITUS
     Route: 058
     Dates: start: 2011, end: 201505
  4. CLIKSTAR [Concomitant]
     Active Substance: CLIKSTAR
     Indication: DEVICE THERAPY
     Dates: start: 20150515
  5. LANTUS [Suspect]
     Active Substance: INSULIN GLARGINE
     Indication: TYPE 2 DIABETES MELLITUS
     Route: 058
     Dates: start: 201505

REACTIONS (11)
  - Visual impairment [Unknown]
  - Infarction [Recovering/Resolving]
  - Vomiting [Not Recovered/Not Resolved]
  - Hyperglycaemia [Not Recovered/Not Resolved]
  - Sluggishness [Not Recovered/Not Resolved]
  - Renal disorder [Unknown]
  - Diabetic retinopathy [Unknown]
  - Dry mouth [Not Recovered/Not Resolved]
  - Hospitalisation [Unknown]
  - Malaise [Unknown]
  - Drug administration error [Unknown]

NARRATIVE: CASE EVENT DATE: 20150515
